FAERS Safety Report 15743437 (Version 1)
Quarter: 2018Q4

REPORT INFORMATION
  Report Type: Spontaneous
  Country: ES (occurrence: ES)
  Receive Date: 20181220
  Receipt Date: 20181220
  Transmission Date: 20190205
  Serious: Yes (Other)
  Sender: FDA-Public Use
  Company Number: ES-009507513-1812ESP005068

PATIENT
  Age: 71 Year
  Sex: Male

DRUGS (7)
  1. LOSARTAN. [Concomitant]
     Active Substance: LOSARTAN
  2. JANUMET [Concomitant]
     Active Substance: METFORMIN HYDROCHLORIDE\SITAGLIPTIN PHOSPHATE
  3. ALLOPURINOL. [Concomitant]
     Active Substance: ALLOPURINOL
  4. ASPIRIN. [Concomitant]
     Active Substance: ASPIRIN
  5. SINEMET [Suspect]
     Active Substance: CARBIDOPA\LEVODOPA
     Indication: PARKINSON^S DISEASE
     Dosage: 25 MG, Q24H
     Route: 048
     Dates: start: 20131031
  6. RASAGILINE. [Concomitant]
     Active Substance: RASAGILINE
  7. LANTUS [Concomitant]
     Active Substance: INSULIN GLARGINE
     Dosage: 100 UNITS/ML INJECTABLE SOLUTION IN PRE-FILLED PEN , 5 PRE-FILLED PENS OF 3 ML

REACTIONS (2)
  - Feeling cold [Recovered/Resolved]
  - Nipple pain [Recovered/Resolved]

NARRATIVE: CASE EVENT DATE: 20180801
